FAERS Safety Report 9070715 (Version 2)
Quarter: 2013Q3

REPORT INFORMATION
  Report Type: Report from Study
  Country: CA (occurrence: CA)
  Receive Date: 20130129
  Receipt Date: 20130718
  Transmission Date: 20140515
  Serious: Yes (Hospitalization)
  Sender: FDA-Public Use
  Company Number: CA-JNJFOC-20130111132

PATIENT
  Age: 48 Year
  Sex: Female
  Weight: 81 kg

DRUGS (7)
  1. REMICADE [Suspect]
     Indication: PSORIATIC ARTHROPATHY
     Route: 042
     Dates: start: 20121212, end: 201301
  2. GRAVOL [Concomitant]
     Route: 048
  3. CYCLOSPORINE [Concomitant]
     Route: 048
  4. PAXIL [Concomitant]
     Route: 048
  5. PREVACID [Concomitant]
     Route: 048
  6. ZANTAC [Concomitant]
     Route: 048
  7. PROMETRIUM [Concomitant]
     Route: 048

REACTIONS (5)
  - Type IV hypersensitivity reaction [Recovering/Resolving]
  - Rash [Recovering/Resolving]
  - Loss of consciousness [Recovering/Resolving]
  - Fall [Recovering/Resolving]
  - Paralysis [Recovering/Resolving]
